FAERS Safety Report 12043155 (Version 1)
Quarter: 2016Q1

REPORT INFORMATION
  Report Type: Report from Study
  Country: US (occurrence: US)
  Receive Date: 20160208
  Receipt Date: 20160208
  Transmission Date: 20160526
  Serious: Yes (Hospitalization, Other)
  Sender: FDA-Public Use
  Company Number: US-ABBVIE-15P-163-1348217-00

PATIENT
  Age: 51 Year
  Sex: Female
  Weight: 76.27 kg

DRUGS (1)
  1. HUMIRA [Suspect]
     Active Substance: ADALIMUMAB
     Indication: PSORIATIC ARTHROPATHY
     Route: 065
     Dates: start: 201307

REACTIONS (5)
  - Viral upper respiratory tract infection [Recovered/Resolved]
  - Blood cholesterol increased [Unknown]
  - Bronchitis [Recovered/Resolved]
  - Hypertension [Unknown]
  - Chest pain [Recovered/Resolved]

NARRATIVE: CASE EVENT DATE: 20150201
